FAERS Safety Report 11320854 (Version 1)
Quarter: 2015Q3

REPORT INFORMATION
  Report Type: Report from Study
  Country: US (occurrence: US)
  Receive Date: 20150729
  Receipt Date: 20150729
  Transmission Date: 20151125
  Serious: No
  Sender: FDA-Public Use
  Company Number: PHEH2015US011360

PATIENT
  Sex: Female
  Weight: 104.76 kg

DRUGS (1)
  1. GILENYA [Suspect]
     Active Substance: FINGOLIMOD HYDROCHLORIDE
     Indication: MULTIPLE SCLEROSIS
     Dosage: 0.5 MG, QD
     Route: 048
     Dates: start: 20150311

REACTIONS (5)
  - Renal disorder [Unknown]
  - Vomiting [Unknown]
  - Malaise [Unknown]
  - Urinary tract infection [Unknown]
  - Headache [Unknown]
